FAERS Safety Report 18256120 (Version 1)
Quarter: 2020Q3

REPORT INFORMATION
  Report Type: Other
  Country: GB (occurrence: GB)
  Receive Date: 20200911
  Receipt Date: 20200911
  Transmission Date: 20201103
  Serious: Yes (Hospitalization, Other)
  Sender: FDA-Public Use
  Company Number: GB-LUPIN PHARMACEUTICALS INC.-2020-05734

PATIENT
  Age: 32 Year
  Sex: Female

DRUGS (2)
  1. ETHINYLESTRADIOL [Suspect]
     Active Substance: ETHINYL ESTRADIOL
     Indication: CONTRACEPTION
     Route: 048
  2. LEVONORGESTREL. [Suspect]
     Active Substance: LEVONORGESTREL
     Indication: CONTRACEPTION
     Dosage: UNK
     Route: 048

REACTIONS (5)
  - Pruritus [Not Recovered/Not Resolved]
  - Product substitution issue [Unknown]
  - Liver function test abnormal [Unknown]
  - Cholestasis [Recovered/Resolved with Sequelae]
  - Jaundice [Recovered/Resolved with Sequelae]
